FAERS Safety Report 9014695 (Version 1)
Quarter: 2013Q1

REPORT INFORMATION
  Report Type: Spontaneous
  Country: US (occurrence: US)
  Receive Date: 20130115
  Receipt Date: 20130115
  Transmission Date: 20140127
  Serious: Yes (Hospitalization)
  Sender: FDA-Public Use
  Company Number: US-009507513-1301USA003460

PATIENT
  Sex: Female

DRUGS (5)
  1. SINGULAIR [Suspect]
     Dosage: 10 MG, UNK
  2. PROAIR HFA [Concomitant]
     Indication: PRODUCT USED FOR UNKNOWN INDICATION
  3. IPRATROPIUM BROMIDE [Concomitant]
  4. ALBUTEROL [Concomitant]
     Dosage: .83%, UNK RESPIRATORY (INHALATION)
  5. XOLAIR [Suspect]

REACTIONS (3)
  - Respiratory tract congestion [Unknown]
  - Bronchitis chronic [Unknown]
  - Asthma [Unknown]
